FAERS Safety Report 6442960-3 (Version None)
Quarter: 2009Q4

REPORT INFORMATION
  Report Type: 
  Country: None (occurrence: None)
  Receive Date: 20091117
  Receipt Date: 20091109
  Transmission Date: 20100525
  Serious: Yes (Other)
  Sender: FDA-Public Use
  Company Number: US-PFIZER INC-2009295673

PATIENT
  Sex: Female

DRUGS (8)
  1. PROVERA [Suspect]
     Indication: HORMONE REPLACEMENT THERAPY
     Dosage: 2.5 MG, UNK
     Dates: start: 19820101, end: 20010401
  2. PREMARIN [Suspect]
     Indication: HORMONE REPLACEMENT THERAPY
     Dosage: 0.625 MG, UNK
     Dates: start: 19820101, end: 20010401
  3. NORVASC [Concomitant]
     Indication: BLOOD PRESSURE
     Dosage: UNK
     Dates: start: 20000301
  4. SYNTHROID [Concomitant]
     Indication: THYROID DISORDER
     Dosage: UNK
  5. MONTELUKAST SODIUM [Concomitant]
     Indication: ASTHMA
     Dosage: UNK
     Dates: start: 20010101
  6. FLOVENT [Concomitant]
     Indication: ASTHMA
     Dosage: UNK
     Dates: start: 20010601
  7. XENICAL [Concomitant]
     Indication: CONSTIPATION
     Dosage: UNK
     Dates: start: 20000101
  8. FOLIC ACID [Concomitant]
     Indication: BLOOD CHOLESTEROL

REACTIONS (1)
  - BREAST CANCER [None]
